FAERS Safety Report 8392140-X (Version None)
Quarter: 2012Q2

REPORT INFORMATION
  Report Type: 
  Country: None (occurrence: None)
  Receive Date: 20120529
  Receipt Date: 20120521
  Transmission Date: 20120825
  Serious: Yes (Other)
  Sender: FDA-Public Use
  Company Number: JP-SANOFI-AVENTIS-2012SA028706

PATIENT
  Age: 70 Year
  Sex: Male

DRUGS (2)
  1. RILUTEK [Suspect]
     Indication: AMYOTROPHIC LATERAL SCLEROSIS
     Dosage: TAKEN TO:AROUND 22 MAR 12
     Route: 048
     Dates: start: 20090618, end: 20120322
  2. GABAPENTIN [Suspect]
     Indication: PAIN
     Route: 065
     Dates: start: 20110314, end: 20110928

REACTIONS (2)
  - SULPHAEMOGLOBIN INCREASED [None]
  - PALLOR [None]
